FAERS Safety Report 24992191 (Version 2)
Quarter: 2025Q1

REPORT INFORMATION
  Report Type: Report from Study
  Country: US (occurrence: US)
  Receive Date: 20250220
  Receipt Date: 20250305
  Transmission Date: 20250408
  Serious: Yes (Hospitalization)
  Sender: TAIHO ONCOLOGY INC
  Company Number: US-TAIHOP-2025-001828

PATIENT
  Age: 90 Year
  Sex: Female
  Weight: 63.5 kg

DRUGS (18)
  1. INQOVI [Suspect]
     Active Substance: CEDAZURIDINE\DECITABINE
     Indication: Acute monocytic leukaemia
     Dosage: CYCLE 1; DECITABINE 35 MG + CEDAZURIDINE 100 MG ON DAYS 1-5 EVERY 28 DAYS
     Route: 048
     Dates: start: 202502, end: 20250221
  2. XARELTO [Concomitant]
     Active Substance: RIVAROXABAN
     Indication: Product used for unknown indication
     Route: 048
  3. VITAMIN C [Concomitant]
     Active Substance: ASCORBIC ACID
     Indication: Product used for unknown indication
     Route: 048
  4. SM MAGNESIUM [Concomitant]
     Indication: Product used for unknown indication
     Route: 048
  5. SM CRANBERRY [Concomitant]
     Indication: Product used for unknown indication
     Route: 048
  6. RA PROBIOTIC COMPLEX [Concomitant]
     Indication: Product used for unknown indication
     Route: 048
  7. OMEPRAZOLE [Concomitant]
     Active Substance: OMEPRAZOLE
     Indication: Product used for unknown indication
     Route: 048
  8. LEVOTHYROXINE SODIUM [Concomitant]
     Active Substance: LEVOTHYROXINE SODIUM
     Indication: Product used for unknown indication
     Route: 048
  9. ESCITALOPRAM OXALATE [Concomitant]
     Active Substance: ESCITALOPRAM OXALATE
     Indication: Product used for unknown indication
     Route: 048
  10. CALCIUM-MAGNESIUM-ZINC-D3 [Concomitant]
     Indication: Product used for unknown indication
     Route: 048
  11. ACYCLOVIR [Concomitant]
     Active Substance: ACYCLOVIR
     Indication: Product used for unknown indication
     Route: 048
  12. SACCHAROMYCES CEREVISIAE [Concomitant]
     Active Substance: SACCHAROMYCES CEREVISIAE
     Indication: Product used for unknown indication
     Route: 048
  13. KETOCONAZOLE [Concomitant]
     Active Substance: KETOCONAZOLE
     Indication: Product used for unknown indication
  14. PROMETHAZINE-DM [Concomitant]
     Indication: Product used for unknown indication
     Route: 048
  15. VENCLEXTA [Concomitant]
     Active Substance: VENETOCLAX
     Indication: Product used for unknown indication
  16. AMOXICILLIN\CLAVULANATE POTASSIUM [Concomitant]
     Active Substance: AMOXICILLIN\CLAVULANATE POTASSIUM
     Indication: Product used for unknown indication
     Route: 048
  17. BETAMETHASONE DIPROPIONATE [Concomitant]
     Active Substance: BETAMETHASONE DIPROPIONATE
     Indication: Product used for unknown indication
  18. CHOLESTYRAMINE [Concomitant]
     Active Substance: CHOLESTYRAMINE
     Indication: Product used for unknown indication
     Route: 048

REACTIONS (5)
  - Asthenia [Not Recovered/Not Resolved]
  - Diarrhoea [Not Recovered/Not Resolved]
  - Diverticulitis [Unknown]
  - Haemoglobin decreased [Unknown]
  - Product use in unapproved indication [Unknown]

NARRATIVE: CASE EVENT DATE: 20250221
